FAERS Safety Report 9571001 (Version 3)
Quarter: 2013Q4

REPORT INFORMATION
  Report Type: Spontaneous
  Country: CA (occurrence: CA)
  Receive Date: 20131001
  Receipt Date: 20131125
  Transmission Date: 20140711
  Serious: Yes (Other)
  Sender: FDA-Public Use
  Company Number: CA-SHIRE-ALL1-2013-06479

PATIENT
  Sex: 0

DRUGS (1)
  1. VYVANSE [Suspect]
     Indication: PRODUCT USED FOR UNKNOWN INDICATION
     Dosage: UNK (30-50 MG), UNKNOWN
     Route: 048

REACTIONS (5)
  - Depression [Unknown]
  - Nightmare [Unknown]
  - Anger [Unknown]
  - Mood altered [Unknown]
  - Irritability [Unknown]
